FAERS Safety Report 7390153-8 (Version None)
Quarter: 2011Q2

REPORT INFORMATION
  Report Type: 
  Country: None (occurrence: None)
  Receive Date: 20110401
  Receipt Date: 20110324
  Transmission Date: 20111010
  Serious: Yes (Other)
  Sender: FDA-Public Use
  Company Number: PHHY2011US11695

PATIENT
  Sex: Male

DRUGS (2)
  1. GILENYA [Suspect]
     Indication: MULTIPLE SCLEROSIS
     Dosage: 0.5 MG, QD
     Route: 048
     Dates: start: 20110131
  2. FAMPRIDINE [Concomitant]
     Indication: GAIT DISTURBANCE
     Dosage: 10 MG, QD
     Route: 048

REACTIONS (3)
  - FATIGUE [None]
  - ASTHENIA [None]
  - HEADACHE [None]
